FAERS Safety Report 10826241 (Version 2)
Quarter: 2016Q1

REPORT INFORMATION
  Report Type: Report from Study
  Country: US (occurrence: US)
  Receive Date: 20150219
  Receipt Date: 20160125
  Transmission Date: 20160525
  Serious: No
  Sender: FDA-Public Use
  Company Number: US-ABBVIE-14K-163-1321063-00

PATIENT
  Age: 66 Year
  Sex: Female

DRUGS (1)
  1. HUMIRA [Suspect]
     Active Substance: ADALIMUMAB
     Indication: PSORIASIS
     Route: 065
     Dates: start: 20141024

REACTIONS (9)
  - Staphylococcal infection [Unknown]
  - Herpes simplex [Unknown]
  - Sinusitis [Unknown]
  - Abasia [Unknown]
  - Erythema [Unknown]
  - Skin tightness [Unknown]
  - Asthenia [Unknown]
  - Psoriasis [Not Recovered/Not Resolved]
  - Pain in extremity [Not Recovered/Not Resolved]

NARRATIVE: CASE EVENT DATE: 2014
